FAERS Safety Report 5471593-0 (Version None)
Quarter: 2007Q3

REPORT INFORMATION
  Report Type: 
  Country: None (occurrence: None)
  Receive Date: 20070928
  Receipt Date: 20070129
  Transmission Date: 20080115
  Serious: No
  Sender: FDA-Public Use
  Company Number: US-BRISTOL-MYERS SQUIBB COMPANY-13661202

PATIENT
  Age: 53 Year
  Sex: Female

DRUGS (3)
  1. DEFINITY [Suspect]
     Indication: ECHOCARDIOGRAM
     Dates: start: 20070129
  2. TOPROL-XL [Concomitant]
  3. ALBUTEROL [Concomitant]

REACTIONS (3)
  - PHARYNGEAL OEDEMA [None]
  - STOMATITIS [None]
  - URTICARIA [None]
